FAERS Safety Report 24169890 (Version 1)
Quarter: 2024Q3

REPORT INFORMATION
  Report Type: Report from Study
  Country: US (occurrence: US)
  Receive Date: 20240803
  Receipt Date: 20240803
  Transmission Date: 20241017
  Serious: Yes (Hospitalization, Other)
  Sender: ABBVIE
  Company Number: US-ABBVIE-5855846

PATIENT
  Age: 61 Year
  Sex: Male
  Weight: 77 kg

DRUGS (17)
  1. IMBRUVICA [Suspect]
     Active Substance: IBRUTINIB
     Indication: Chronic lymphocytic leukaemia
     Route: 048
     Dates: start: 20141223, end: 201702
  2. LEVOFLOXACIN [Concomitant]
     Active Substance: LEVOFLOXACIN
     Indication: Product used for unknown indication
  3. ARIZONA GARLIC [Concomitant]
     Indication: Product used for unknown indication
  4. NIVOLUMAB [Concomitant]
     Active Substance: NIVOLUMAB
     Indication: Product used for unknown indication
     Dosage: CYCLE REPEAT EVERY 2 WEEKS.
     Dates: start: 20170615
  5. NIVOLUMAB [Concomitant]
     Active Substance: NIVOLUMAB
     Indication: Product used for unknown indication
     Dates: start: 20170629
  6. PRASTERONE [Concomitant]
     Active Substance: PRASTERONE
     Indication: Product used for unknown indication
  7. LEVOTHYROXINE [Concomitant]
     Active Substance: LEVOTHYROXINE\LEVOTHYROXINE SODIUM
     Indication: Product used for unknown indication
     Dosage: UNIT DOSE : 0.137 MG
     Route: 048
  8. Maca [Concomitant]
     Indication: Product used for unknown indication
     Route: 048
  9. MELATONIN [Concomitant]
     Active Substance: MELATONIN
     Indication: Product used for unknown indication
     Dosage: UNIT DOSE: 1.5MG
     Route: 048
  10. SUPER K [Concomitant]
     Indication: Product used for unknown indication
     Route: 048
  11. TADALAFIL [Concomitant]
     Active Substance: TADALAFIL
     Indication: Product used for unknown indication
  12. TESTOSTERONE [Concomitant]
     Active Substance: TESTOSTERONE
     Indication: Product used for unknown indication
     Dosage: 20.25 MG/ACTUATION (1.62%) TRANSDERMAL GEL,
     Route: 061
  13. ZINC [Concomitant]
     Active Substance: ZINC
     Indication: Product used for unknown indication
  14. RITUXAN [Concomitant]
     Active Substance: RITUXIMAB
     Indication: Product used for unknown indication
  15. BORON [Concomitant]
     Active Substance: BORON
     Indication: Product used for unknown indication
     Route: 048
  16. CALQUENCE [Concomitant]
     Active Substance: ACALABRUTINIB
     Indication: Product used for unknown indication
     Route: 048
  17. VITAMIN B12 [Concomitant]
     Active Substance: CYANOCOBALAMIN
     Indication: Product used for unknown indication
     Dosage: 500 MCG TABLET
     Route: 048

REACTIONS (30)
  - Chronic lymphocytic leukaemia recurrent [Unknown]
  - Pyrexia [Recovered/Resolved]
  - Traumatic fracture [Unknown]
  - Visual impairment [Not Recovered/Not Resolved]
  - Mediastinoscopy [Recovered/Resolved]
  - Haemolytic anaemia [Unknown]
  - Hypoxia [Unknown]
  - Neutropenia [Unknown]
  - Disease progression [Unknown]
  - Lymphadenopathy [Unknown]
  - Hypogammaglobulinaemia [Unknown]
  - Sinusitis [Unknown]
  - Globulins decreased [Unknown]
  - Pneumonia [Unknown]
  - Hodgkin^s disease [Unknown]
  - Hodgkin^s disease [Unknown]
  - Small intestinal resection [Unknown]
  - Abdominal lymphadenopathy [Unknown]
  - Paratracheal lymphadenopathy [Unknown]
  - Chronic lymphocytic leukaemia [Unknown]
  - Musculoskeletal disorder [Unknown]
  - Arthralgia [Unknown]
  - Spleen disorder [Unknown]
  - Investigation abnormal [Unknown]
  - Pneumonia [Unknown]
  - Lymphocytosis [Unknown]
  - Lymphadenopathy [Unknown]
  - Microcytosis [Unknown]
  - Anisocytosis [Unknown]
  - B-cell small lymphocytic lymphoma [Unknown]

NARRATIVE: CASE EVENT DATE: 20170601
